FAERS Safety Report 13926609 (Version 1)
Quarter: 2017Q3

REPORT INFORMATION
  Report Type: Spontaneous
  Country: US (occurrence: None)
  Receive Date: 20170831
  Receipt Date: 20170831
  Transmission Date: 20171127
  Serious: Yes (Life-Threatening, Hospitalization)
  Sender: FDA-Public Use
  Company Number: None

PATIENT
  Age: 88 Year
  Sex: Male
  Weight: 81.65 kg

DRUGS (1)
  1. CLOPIDOGREL [Suspect]
     Active Substance: CLOPIDOGREL BISULFATE
     Indication: CEREBROVASCULAR ACCIDENT
     Route: 048
     Dates: start: 20170703

REACTIONS (10)
  - Tachycardia [None]
  - Haematocrit decreased [None]
  - Gastric haemorrhage [None]
  - Dizziness [None]
  - Haemoglobin decreased [None]
  - Blood pressure abnormal [None]
  - Tremor [None]
  - Polyp [None]
  - Gastritis erosive [None]
  - Cardio-respiratory arrest [None]

NARRATIVE: CASE EVENT DATE: 20170703
